FAERS Safety Report 9235983 (Version 1)
Quarter: 2013Q2

REPORT INFORMATION
  Report Type: Spontaneous
  Country: US (occurrence: US)
  Receive Date: 20130417
  Receipt Date: 20130417
  Transmission Date: 20140414
  Serious: Yes (Hospitalization)
  Sender: FDA-Public Use
  Company Number: US-SANOFI-AVENTIS-2013SA038836

PATIENT
  Sex: Female

DRUGS (3)
  1. LANTUS [Suspect]
     Indication: DIABETES MELLITUS
     Dosage: DOSE:65 UNIT(S)
     Route: 051
     Dates: start: 201210
  2. LANTUS [Suspect]
     Indication: DIABETES MELLITUS
     Dosage: DOSE:65 UNIT(S)
     Route: 051
  3. LANTUS [Suspect]
     Indication: DIABETES MELLITUS
     Dosage: DOSE:90 UNIT(S)
     Route: 051

REACTIONS (1)
  - Transient ischaemic attack [Unknown]
